FAERS Safety Report 20068663 (Version 1)
Quarter: 2021Q4

REPORT INFORMATION
  Report Type: Spontaneous
  Country: US (occurrence: US)
  Receive Date: 20211115
  Receipt Date: 20211115
  Transmission Date: 20220303
  Serious: No
  Sender: FDA-Public Use
  Company Number: US-PERRIGO-21US001925

PATIENT
  Sex: Male
  Weight: 69.388 kg

DRUGS (3)
  1. ENTOCORT EC [Suspect]
     Active Substance: BUDESONIDE
     Indication: Colitis
     Dosage: 3 MG, TID
     Route: 048
     Dates: start: 2018, end: 2018
  2. ENTOCORT EC [Suspect]
     Active Substance: BUDESONIDE
     Dosage: 3 MG, BID
     Route: 048
     Dates: start: 2020, end: 2020
  3. BENTYL [Concomitant]
     Active Substance: DICYCLOMINE HYDROCHLORIDE
     Indication: Abdominal pain upper
     Dosage: UNKNOWN, UNKNOWN
     Route: 065
     Dates: start: 2018, end: 2020

REACTIONS (1)
  - Drug ineffective for unapproved indication [Unknown]

NARRATIVE: CASE EVENT DATE: 20180101
